FAERS Safety Report 9833506 (Version 2)
Quarter: 2014Q1

REPORT INFORMATION
  Report Type: Report from Study
  Country: DE (occurrence: DE)
  Receive Date: 20140122
  Receipt Date: 20140124
  Transmission Date: 20141002
  Serious: Yes (Hospitalization, Other)
  Sender: FDA-Public Use
  Company Number: DE-ROCHE-1333600

PATIENT
  Age: 82 Year
  Sex: Female
  Weight: 51 kg

DRUGS (1)
  1. RITUXIMAB [Suspect]
     Indication: CHRONIC LYMPHOCYTIC LEUKAEMIA
     Route: 042
     Dates: start: 20120823, end: 20120823

REACTIONS (3)
  - Enterocolitis [Not Recovered/Not Resolved]
  - Anaemia [Unknown]
  - Leukopenia [Unknown]
